FAERS Safety Report 15013018 (Version 1)
Quarter: 2018Q2

REPORT INFORMATION
  Report Type: Spontaneous
  Country: ZA (occurrence: ZA)
  Receive Date: 20180614
  Receipt Date: 20180614
  Transmission Date: 20180711
  Serious: Yes (Other)
  Sender: FDA-Public Use
  Company Number: PHHY2018ZA021030

PATIENT
  Sex: Female

DRUGS (2)
  1. DOPAQUEL [Suspect]
     Active Substance: QUETIAPINE
     Indication: PRODUCT USED FOR UNKNOWN INDICATION
     Dosage: UNK
     Route: 065
  2. GLAUCOSAN [Suspect]
     Active Substance: TIMOLOL MALEATE
     Indication: GLAUCOMA
     Dosage: 0.5 %, UNK (ON A MONTHLY BASIS)
     Route: 031
     Dates: start: 201802

REACTIONS (2)
  - Dementia [Unknown]
  - Drug ineffective [Unknown]
